FAERS Safety Report 5227908-1 (Version None)
Quarter: 2007Q1

REPORT INFORMATION
  Report Type: 
  Country: None (occurrence: None)
  Receive Date: 20070202
  Receipt Date: 20070124
  Transmission Date: 20070707
  Serious: Yes (Hospitalization)
  Sender: FDA-Public Use
  Company Number: AU-PFIZER INC-2006102284

PATIENT
  Sex: Female

DRUGS (4)
  1. EPIRUBICIN HYDROCHLORIDE [Suspect]
     Indication: BREAST CANCER
     Dosage: TEXT:UNKNOWN-FREQ:UNKNOWN
     Route: 065
  2. FLUOROURACIL [Suspect]
     Indication: BREAST CANCER
     Dates: start: 20060810
  3. CYCLOPHOSPHAMIDE [Suspect]
     Indication: BREAST CANCER
     Dates: start: 20060810
  4. TRIPTORELIN ACETATE [Suspect]
     Indication: BREAST CANCER
     Dosage: TEXT:UNKNOWN-FREQ:UNKNOWN
     Route: 065

REACTIONS (1)
  - NEUTROPENIA [None]
